FAERS Safety Report 7771679-1 (Version None)
Quarter: 2011Q3

REPORT INFORMATION
  Report Type: 
  Country: None (occurrence: None)
  Receive Date: 20110922
  Receipt Date: 20110218
  Transmission Date: 20111222
  Serious: No
  Sender: FDA-Public Use
  Company Number: US-ASTRAZENECA-2011SE09431

PATIENT
  Age: 37 Year
  Sex: Female
  Weight: 156.5 kg

DRUGS (8)
  1. CYMBALTA [Concomitant]
  2. SOMA [Concomitant]
  3. SEROQUEL [Suspect]
     Indication: SLEEP DISORDER
     Route: 048
     Dates: start: 20100101, end: 20110217
  4. CRESTOR [Concomitant]
  5. NEXIUM [Concomitant]
  6. SINGULAIR [Concomitant]
  7. SEROQUEL [Suspect]
     Indication: BIPOLAR DISORDER
     Route: 048
     Dates: start: 20100101, end: 20110217
  8. LORCET-HD [Concomitant]

REACTIONS (5)
  - NO ADVERSE EVENT [None]
  - THINKING ABNORMAL [None]
  - HEADACHE [None]
  - THERAPEUTIC RESPONSE UNEXPECTED [None]
  - DRUG DOSE OMISSION [None]
